FAERS Safety Report 5167679-0 (Version None)
Quarter: 2006Q4

REPORT INFORMATION
  Report Type: 
  Country: None (occurrence: None)
  Receive Date: 20061201
  Receipt Date: 20061201
  Transmission Date: 20070319
  Serious: Yes (Hospitalization)
  Sender: FDA-Public Use
  Company Number: None

PATIENT
  Age: 70 Year
  Sex: Male
  Weight: 81.1 kg

DRUGS (4)
  1. TERAZOSIN HCL [Suspect]
     Indication: BENIGN PROSTATIC HYPERPLASIA
     Dosage: 10 MG PO DAILY AT BEDTIME
     Route: 048
     Dates: start: 20000412, end: 20060920
  2. LISINOPRIL [Suspect]
     Indication: HYPERTENSION
     Dosage: 40 MG PO DAILY
     Route: 048
     Dates: start: 20000321, end: 20060920
  3. FUROSEMIDE [Suspect]
     Dosage: FUROSEMIDE 160 MG PO BID
     Route: 048
     Dates: start: 20041206, end: 20060920
  4. CARVEDILOL [Suspect]
     Indication: CARDIAC FAILURE CONGESTIVE
     Dosage: 12.5 MG PO BID
     Route: 048
     Dates: start: 20060203, end: 20060920

REACTIONS (5)
  - ASTHENIA [None]
  - DIZZINESS [None]
  - HYPOTENSION [None]
  - NAUSEA [None]
  - RENAL FAILURE ACUTE [None]
